FAERS Safety Report 7541602-3 (Version None)
Quarter: 2011Q2

REPORT INFORMATION
  Report Type: 
  Country: None (occurrence: None)
  Receive Date: 20110613
  Receipt Date: 20110602
  Transmission Date: 20111010
  Serious: Yes (Death, Other)
  Sender: FDA-Public Use
  Company Number: CA-ELI_LILLY_AND_COMPANY-CA201106000533

PATIENT
  Sex: Male
  Weight: 81.633 kg

DRUGS (15)
  1. DIAZEPAM [Concomitant]
  2. BENZTROPINE MESYLATE [Concomitant]
  3. FLOVENT [Concomitant]
  4. MIRTAZAPINE [Concomitant]
  5. BUPROPION HCL [Concomitant]
  6. ZYPREXA [Suspect]
     Indication: SCHIZOPHRENIA
     Dosage: 20 MG, QD
  7. ZYPREXA ZYDIS [Suspect]
     Dosage: 15 MG, QD
  8. CLONAZEPAM [Concomitant]
  9. ZYPREXA [Suspect]
     Dosage: 5 MG, QD
  10. ZYPREXA ZYDIS [Suspect]
     Dosage: 10 MG, QD
  11. ZYPREXA [Suspect]
     Dosage: 10 MG, QD
  12. ZYPREXA ZYDIS [Suspect]
     Indication: SCHIZOPHRENIA
     Dosage: 30 MG, QD
  13. LOXAPINE HCL [Concomitant]
  14. RISPERIDONE [Concomitant]
  15. ALBUTEROL [Concomitant]

REACTIONS (11)
  - HYPERTENSIVE CARDIOMYOPATHY [None]
  - DIABETES MELLITUS [None]
  - OVERDOSE [None]
  - MYOCARDIAL INFARCTION [None]
  - NEUTROPHILIA [None]
  - ASPARTATE AMINOTRANSFERASE INCREASED [None]
  - BLOOD TRIGLYCERIDES INCREASED [None]
  - HEPATIC STEATOSIS [None]
  - WEIGHT INCREASED [None]
  - EYE DISCHARGE [None]
  - BLOOD CHOLESTEROL INCREASED [None]
